FAERS Safety Report 5088224-4 (Version None)
Quarter: 2006Q3

REPORT INFORMATION
  Report Type: 
  Country: None (occurrence: None)
  Receive Date: 20060823
  Receipt Date: 20060823
  Transmission Date: 20061208
  Serious: Yes (Life-Threatening)
  Sender: FDA-Public Use
  Company Number: None

PATIENT
  Age: 60 Year
  Sex: Female

DRUGS (1)
  1. OPTIRAY 350 [Suspect]
     Indication: DYSPNOEA
     Dosage: 125 ML   BOLUS   IV AC
     Route: 040
     Dates: start: 20060618

REACTIONS (6)
  - CARDIAC ARREST [None]
  - PLEURAL EFFUSION [None]
  - PNEUMONIA [None]
  - PULMONARY OEDEMA [None]
  - RESPIRATORY DISTRESS [None]
  - SUPERINFECTION [None]
